FAERS Safety Report 8299413-X (Version None)
Quarter: 2012Q2

REPORT INFORMATION
  Report Type: 
  Country: None (occurrence: None)
  Receive Date: 20120419
  Receipt Date: 20120417
  Transmission Date: 20120825
  Serious: No
  Sender: FDA-Public Use
  Company Number: JP-B.I. PHARMACEUTICALS,INC./RIDGEFIELD-2011-BP-27035NB

PATIENT
  Sex: Male
  Weight: 59 kg

DRUGS (5)
  1. PRADAXA [Suspect]
     Indication: ATRIAL FIBRILLATION
     Dosage: 300 MG
     Route: 048
     Dates: start: 20111028, end: 20111124
  2. LANIRAPID [Concomitant]
     Dosage: 0.1 MG
     Route: 048
     Dates: start: 20110617
  3. INDAPAMIDE [Concomitant]
     Dosage: 1 MG
     Route: 048
     Dates: start: 20110802
  4. TIOSTAR [Concomitant]
     Dosage: 20 MG
     Route: 048
     Dates: start: 20110619
  5. LEVOTHYROXINE SODIUM [Concomitant]
     Dosage: 50 MCG
     Route: 048
     Dates: start: 20110719

REACTIONS (2)
  - OESOPHAGEAL ULCER [None]
  - OESOPHAGITIS [None]
